FAERS Safety Report 15230613 (Version 1)
Quarter: 2018Q3

REPORT INFORMATION
  Report Type: Spontaneous
  Country: US (occurrence: US)
  Receive Date: 20180802
  Receipt Date: 20180802
  Transmission Date: 20181010
  Serious: No
  Sender: FDA-Public Use
  Company Number: US-ASTRAZENECA-2018SE88694

PATIENT
  Sex: Female
  Weight: 53.5 kg

DRUGS (5)
  1. MONTELUKAST [Concomitant]
     Active Substance: MONTELUKAST SODIUM
     Indication: MULTIPLE ALLERGIES
     Route: 048
     Dates: start: 2003
  2. SYMBICORT [Suspect]
     Active Substance: BUDESONIDE\FORMOTEROL FUMARATE DIHYDRATE
     Indication: ASTHMA
     Dosage: 80?4.5MCG 1 PUFF TWO TIMES A DAY
     Route: 055
  3. PROAIR HFA [Concomitant]
     Active Substance: ALBUTEROL SULFATE
     Indication: ASTHMA
     Dosage: 2 PUFFS EVERY 6 HOURS, AS NEEDED.
     Route: 055
     Dates: start: 1998
  4. SYMBICORT [Suspect]
     Active Substance: BUDESONIDE\FORMOTEROL FUMARATE DIHYDRATE
     Indication: ASTHMA
     Dosage: 80?4.5MCG 2 PUFFS TWO TIMES A DAY
     Route: 055
     Dates: start: 2014
  5. MONTELUKAST [Concomitant]
     Active Substance: MONTELUKAST SODIUM
     Indication: ASTHMA
     Route: 048
     Dates: start: 2003

REACTIONS (4)
  - Rash [Not Recovered/Not Resolved]
  - Multiple allergies [Unknown]
  - Dermatitis herpetiformis [Not Recovered/Not Resolved]
  - Intentional product misuse [Unknown]
